FAERS Safety Report 24777331 (Version 1)
Quarter: 2024Q4

REPORT INFORMATION
  Report Type: Spontaneous
  Country: US (occurrence: US)
  Receive Date: 20241226
  Receipt Date: 20241226
  Transmission Date: 20250115
  Serious: Yes (Life-Threatening, Disabling, Other)
  Sender: CHATTEM
  Company Number: US-OPELLA-2024OHG041852

PATIENT
  Age: 60 Year
  Sex: Female

DRUGS (1)
  1. TALC [Suspect]
     Active Substance: TALC
     Indication: Product used for unknown indication
     Route: 065

REACTIONS (10)
  - Epithelioid mesothelioma [Not Recovered/Not Resolved]
  - Impaired work ability [Not Recovered/Not Resolved]
  - Disability [Not Recovered/Not Resolved]
  - Mental disorder [Not Recovered/Not Resolved]
  - Pain [Not Recovered/Not Resolved]
  - Quality of life decreased [Not Recovered/Not Resolved]
  - Anxiety [Not Recovered/Not Resolved]
  - Depression [Not Recovered/Not Resolved]
  - Injury [Not Recovered/Not Resolved]
  - Exposure to chemical pollution [Unknown]

NARRATIVE: CASE EVENT DATE: 20240801
